FAERS Safety Report 5703242-8 (Version None)
Quarter: 2008Q2

REPORT INFORMATION
  Report Type: 
  Country: None (occurrence: None)
  Receive Date: 20080411
  Receipt Date: 20080402
  Transmission Date: 20081010
  Serious: Yes (Other)
  Sender: FDA-Public Use
  Company Number: US-PFIZER INC-2008011629

PATIENT
  Sex: Female
  Weight: 97.272 kg

DRUGS (6)
  1. CELEBREX [Suspect]
     Indication: OSTEOARTHRITIS
     Route: 048
     Dates: start: 20080123, end: 20080204
  2. CELEBREX [Suspect]
     Indication: SPINAL OSTEOARTHRITIS
  3. AMOXICILLIN [Suspect]
     Indication: TOOTH INFECTION
     Route: 048
     Dates: start: 20070104, end: 20080202
  4. AMOXICILLIN [Suspect]
     Indication: GINGIVAL INFECTION
  5. VITAMIN CAP [Concomitant]
  6. ENZYMES [Concomitant]

REACTIONS (5)
  - DRUG HYPERSENSITIVITY [None]
  - IMPAIRED HEALING [None]
  - SWELLING FACE [None]
  - THROAT TIGHTNESS [None]
  - URTICARIA [None]
